FAERS Safety Report 4730386-X (Version None)
Quarter: 2005Q3

REPORT INFORMATION
  Report Type: 
  Country: None (occurrence: None)
  Receive Date: 20050729
  Receipt Date: 20050729
  Transmission Date: 20060218
  Serious: Yes (Life-Threatening)
  Sender: FDA-Public Use
  Company Number: None

PATIENT
  Age: 41 Year
  Sex: Female
  Weight: 68.0396 kg

DRUGS (1)
  1. ZOLOFT [Suspect]
     Indication: DEPRESSION
     Dosage: 100MG 1 A DAY ORAL
     Route: 048

REACTIONS (4)
  - AGITATION [None]
  - AKATHISIA [None]
  - DEPRESSION [None]
  - SUICIDE ATTEMPT [None]
